FAERS Safety Report 7849784-0 (Version None)
Quarter: 2011Q4

REPORT INFORMATION
  Report Type: 
  Country: None (occurrence: None)
  Receive Date: 20111025
  Receipt Date: 20111025
  Transmission Date: 20120403
  Serious: Yes (Hospitalization)
  Sender: FDA-Public Use
  Company Number: None

PATIENT
  Sex: Male
  Weight: 53.1 kg

DRUGS (3)
  1. CISPLATIN [Suspect]
     Dosage: 176 MG
     Dates: end: 20090223
  2. MS CONTIN [Concomitant]
  3. OXYCODONE HCL [Concomitant]

REACTIONS (4)
  - DISORIENTATION [None]
  - URINARY INCONTINENCE [None]
  - CONFUSIONAL STATE [None]
  - COGNITIVE DISORDER [None]
